FAERS Safety Report 20159115 (Version 1)
Quarter: 2021Q4

REPORT INFORMATION
  Report Type: Spontaneous
  Country: US (occurrence: US)
  Receive Date: 20211208
  Receipt Date: 20211208
  Transmission Date: 20220303
  Serious: No
  Sender: FDA-Public Use
  Company Number: US-AMERICAN REGENT INC-2021002407

PATIENT
  Sex: Female

DRUGS (9)
  1. VENOFER [Suspect]
     Active Substance: IRON SUCROSE
     Indication: Iron deficiency anaemia
     Dosage: 100 MILLIGRAM, IN VOLUMES OF 500ML, ONCE WEEKLY, EVERY 7-10 DAYS
     Route: 042
     Dates: start: 202107, end: 202107
  2. VENOFER [Suspect]
     Active Substance: IRON SUCROSE
     Dosage: 100 MILLIGRAM, IN VOLUMES OF 250 ML ONCE WEEKLY, EVERY 7-10 DAYS
     Route: 042
     Dates: start: 2021, end: 2021
  3. VENOFER [Suspect]
     Active Substance: IRON SUCROSE
     Dosage: 100 MILLIGRAM, IN VOLUMES OF 500ML, ONCE WEEKLY, EVERY 7-10 DAYS
     Route: 042
     Dates: start: 2021, end: 2021
  4. VENOFER [Suspect]
     Active Substance: IRON SUCROSE
     Dosage: 100 MILLIGRAM, IN VOLUMES OF 500ML, ONCE WEEKLY, EVERY 7-10 DAYS
     Route: 042
     Dates: start: 2021, end: 2021
  5. VENOFER [Suspect]
     Active Substance: IRON SUCROSE
     Dosage: 100 MILLIGRAM, IN VOLUMES OF 500ML, ONCE WEEKLY, EVERY 7-10 DAYS
     Route: 042
     Dates: start: 2021, end: 2021
  6. VENOFER [Suspect]
     Active Substance: IRON SUCROSE
     Dosage: 100 MILLIGRAM, IN VOLUMES OF 500ML, ONCE WEEKLY, EVERY 7-10 DAYS
     Route: 042
     Dates: start: 2021, end: 2021
  7. VENOFER [Suspect]
     Active Substance: IRON SUCROSE
     Dosage: 100 MILLIGRAM, IN VOLUMES OF 500ML, ONCE WEEKLY, EVERY 7-10 DAYS
     Route: 042
     Dates: start: 2021, end: 2021
  8. VENOFER [Suspect]
     Active Substance: IRON SUCROSE
     Dosage: 100 MILLIGRAM, IN VOLUMES OF 500ML, ONCE WEEKLY, EVERY 7-10 DAYS
     Route: 042
     Dates: start: 2021, end: 2021
  9. VENOFER [Suspect]
     Active Substance: IRON SUCROSE
     Dosage: 100 MILLIGRAM, IN VOLUMES OF 500ML, ONCE WEEKLY, EVERY 7-10 DAYS
     Route: 042
     Dates: start: 2021, end: 2021

REACTIONS (4)
  - Abdominal distension [Unknown]
  - Product use in unapproved indication [Unknown]
  - Product preparation issue [Unknown]
  - Incorrect product administration duration [Unknown]

NARRATIVE: CASE EVENT DATE: 20210101
